FAERS Safety Report 10149214 (Version 1)
Quarter: 2014Q2

REPORT INFORMATION
  Report Type: Spontaneous
  Country: US (occurrence: None)
  Receive Date: 20140501
  Receipt Date: 20140501
  Transmission Date: 20141212
  Serious: No
  Sender: FDA-Public Use
  Company Number: None

PATIENT
  Age: 39 Year
  Sex: Male

DRUGS (7)
  1. REBIF REBIDOSE [Suspect]
     Indication: PRODUCT USED FOR UNKNOWN INDICATION
     Route: 058
     Dates: start: 20131025
  2. BACLOFEN [Concomitant]
  3. WELLBUTRIN XL [Concomitant]
  4. SEROQUEL [Concomitant]
  5. LEVOTHYROXINE [Concomitant]
  6. FOLIC ACID [Concomitant]
  7. VIMPAT [Concomitant]

REACTIONS (1)
  - Convulsion [None]
